FAERS Safety Report 9117835 (Version 3)
Quarter: 2013Q2

REPORT INFORMATION
  Report Type: Spontaneous
  Country: US (occurrence: US)
  Receive Date: 20130208
  Receipt Date: 20130408
  Transmission Date: 20140414
  Serious: Yes (Death)
  Sender: FDA-Public Use
  Company Number: PHEH2013US003136

PATIENT
  Age: 63 Year
  Sex: Female

DRUGS (21)
  1. GILENYA [Suspect]
     Indication: MULTIPLE SCLEROSIS
     Dosage: 0.5 MG, QD
     Route: 048
     Dates: start: 20110125, end: 20110527
  2. TYSABRI [Suspect]
  3. DIAZEPAM [Concomitant]
     Indication: ANXIETY
     Dosage: 5 MG, BID
     Route: 048
  4. NEXIUM [Concomitant]
     Dosage: 40 MG, PRN
  5. MIRALAX [Concomitant]
     Dosage: UNK
  6. NORCO [Concomitant]
     Indication: PAIN
     Dosage: UNK UKN, UNK
  7. NUEDEXTA [Concomitant]
     Dosage: UNK UKN, UNK
  8. PAXIL [Concomitant]
     Dosage: 30 MG, DAILY
  9. PENTASA [Concomitant]
     Dosage: 500 MG, BID
  10. PENTASA [Concomitant]
     Dosage: 1000 MG, QD
  11. XANAX [Concomitant]
     Dosage: 0.25 MG, TID
  12. ZYRTEC [Concomitant]
     Dosage: 10 MG, PRN
  13. AMBIEN [Concomitant]
     Dosage: 10 MG, PRN
  14. KLOR-CON [Concomitant]
     Dosage: 20 MG, BID
  15. REFRESH PLUS [Concomitant]
     Indication: DRY EYE
  16. SENOKOT [Concomitant]
  17. ATIVAN [Concomitant]
     Dosage: 0.5 MG, UNK
  18. TRAZODONE [Concomitant]
     Dosage: 100 MG, QD
  19. NALTREXONE [Concomitant]
  20. VALIUM [Concomitant]
     Indication: ANXIETY
     Dosage: 5 MG, PRN
  21. ACETAMINOPHEN [Concomitant]
     Dosage: 2 MG, EVERY 6 HRS

REACTIONS (1)
  - Death [Fatal]
